FAERS Safety Report 7412246-9 (Version None)
Quarter: 2011Q2

REPORT INFORMATION
  Report Type: 
  Country: None (occurrence: None)
  Receive Date: 20110413
  Receipt Date: 20110404
  Transmission Date: 20111010
  Serious: Yes (Hospitalization)
  Sender: FDA-Public Use
  Company Number: FR-PFIZER INC-2011074893

PATIENT
  Age: 33 Year
  Sex: Male
  Weight: 84 kg

DRUGS (34)
  1. NICORETTE [Suspect]
     Indication: NICOTINE DEPENDENCE
     Dosage: 10 MG, 6X/DAY
     Route: 055
     Dates: start: 20101127, end: 20101210
  2. VESANOID [Suspect]
     Indication: ACUTE MYELOID LEUKAEMIA
     Dosage: 90 MG, 1X/DAY
     Route: 048
     Dates: start: 20101126, end: 20101215
  3. GENTAMICIN [Suspect]
     Dosage: 2 DF, 3X/DAY
     Route: 048
     Dates: start: 20101126, end: 20101216
  4. EMEND [Suspect]
     Dosage: 1 DF, 1X/DAY
     Route: 048
     Dates: start: 20101126, end: 20101206
  5. TARGOCID [Suspect]
     Dosage: 400 MG, 2X/DAY
     Dates: start: 20101207, end: 20101227
  6. NOXAFIL [Suspect]
     Dosage: 200 MG, 3X/DAY
     Route: 042
     Dates: start: 20101202, end: 20101206
  7. ATARAX [Concomitant]
     Dosage: 25 MG, 2X/DAY
     Dates: start: 20101207, end: 20101221
  8. ZAVEDOS [Suspect]
     Indication: ACUTE MYELOID LEUKAEMIA
     Dosage: 24 MG, ALTERNATE DAY
     Route: 042
     Dates: start: 20101126, end: 20101130
  9. MORPHINE [Concomitant]
     Dosage: 20 MG, UNK
     Route: 042
     Dates: start: 20101202, end: 20101216
  10. IDARAC [Concomitant]
     Dosage: 2 TABLETS PER DAY
     Dates: start: 20101210, end: 20101215
  11. SPIRIVA [Suspect]
     Dosage: 1 DF, 1X/DAY
     Route: 055
  12. TIENAM [Suspect]
     Dosage: 1 G, 3X/DAY
     Route: 042
     Dates: start: 20101202, end: 20101208
  13. DECTANCYL [Suspect]
     Dosage: 20 MG, 1X/DAY
     Route: 048
     Dates: start: 20101126, end: 20101129
  14. NICOTINELL [Concomitant]
     Dosage: 1 THEN 2 MG/DAY (MAX 6/DAY)
     Dates: start: 20101126, end: 20101207
  15. VFEND [Suspect]
     Indication: ASPERGILLOSIS
     Dosage: 400 MG, 2X/DAY
     Route: 042
     Dates: start: 20101206, end: 20101218
  16. VANCOMYCIN HCL [Suspect]
     Dosage: 1 G, 2X/DAY
     Route: 042
     Dates: start: 20101202, end: 20101207
  17. CLAVENTIN [Suspect]
     Dosage: 1 DF, 3X/DAY
     Route: 042
     Dates: start: 20101207, end: 20101227
  18. ZOVIRAX [Suspect]
     Indication: MOUTH ULCERATION
     Dosage: 500 MG, 3X/DAY
     Route: 042
     Dates: start: 20101202, end: 20101210
  19. ZOPHREN [Concomitant]
     Dosage: 8 MG, 2X/DAY
     Dates: start: 20101126, end: 20101206
  20. ARACYTINE [Suspect]
     Indication: ACUTE MYELOID LEUKAEMIA
     Dosage: 400 MG/M2
     Route: 042
     Dates: start: 20101126, end: 20101202
  21. SYMBICORT [Suspect]
     Dosage: 1 DF, 2X/DAY
     Route: 055
     Dates: start: 20101202
  22. MOPRAL [Concomitant]
     Dosage: 20 MG DAILY
     Dates: start: 20101126
  23. TAZOCILLINE [Suspect]
     Dosage: 1 DF, 4X/DAY
     Route: 042
     Dates: start: 20101126, end: 20101201
  24. EFFEXOR [Concomitant]
     Dosage: 75 MG, 1X/DAY
  25. FASTURTEC [Concomitant]
     Indication: TUMOUR LYSIS SYNDROME
     Dosage: 18 MG DAILY
     Route: 042
     Dates: start: 20101126, end: 20101127
  26. CLOTTAFACT [Concomitant]
     Indication: DISSEMINATED INTRAVASCULAR COAGULATION
     Dosage: 18 G DURING THE FIRST FIVE DAYS
     Dates: start: 20101126, end: 20101130
  27. SOLIAN [Concomitant]
     Dosage: 600 MG, 1X/DAY
  28. CIFLOX [Suspect]
     Dosage: 1 DF, 2X/DAY
     Route: 042
     Dates: start: 20101202, end: 20101207
  29. COLISTIN SULFATE [Suspect]
     Dosage: 2 DF, 3X/DAY
     Route: 048
     Dates: start: 20101126, end: 20101216
  30. IMODIUM [Concomitant]
     Dosage: 2 CAPSULES DAILY
     Dates: start: 20101126, end: 20101207
  31. NICOPATCH [Concomitant]
     Dosage: 21 MG/24 H
  32. SERESTA [Concomitant]
     Dosage: 10 MG, (3X/DAY MAX)
  33. BRICANYL [Concomitant]
     Dosage: UNK
     Dates: start: 20101203, end: 20101223
  34. ATROVENT [Concomitant]
     Dosage: UNK
     Dates: start: 20101203, end: 20101223

REACTIONS (2)
  - NECROTISING ULCERATIVE GINGIVOSTOMATITIS [None]
  - CONDITION AGGRAVATED [None]
